FAERS Safety Report 8532448 (Version 7)
Quarter: 2013Q4

REPORT INFORMATION
  Report Type: Spontaneous
  Country: US (occurrence: US)
  Receive Date: 20120426
  Receipt Date: 20131104
  Transmission Date: 20140711
  Serious: Yes (Death, Hospitalization)
  Sender: FDA-Public Use
  Company Number: US-GLAXOSMITHKLINE-B0717304A

PATIENT
  Age: 73 Year
  Sex: Male
  Weight: 114.5 kg

DRUGS (1)
  1. AVANDIA [Suspect]
     Indication: DIABETES MELLITUS
     Dosage: 8MG PER DAY
     Route: 048
     Dates: start: 2000, end: 200308

REACTIONS (13)
  - Death [Fatal]
  - Myocardial ischaemia [Unknown]
  - Mitral valve incompetence [Unknown]
  - Cardiac failure congestive [Unknown]
  - Aortic stenosis [Unknown]
  - Coronary artery disease [Unknown]
  - Peripheral vascular disorder [Unknown]
  - Stent placement [Unknown]
  - Hyperlipidaemia [Unknown]
  - Cardiomegaly [Unknown]
  - Arteriosclerosis [Unknown]
  - Aortic valve replacement [Unknown]
  - Atrial fibrillation [Unknown]
